FAERS Safety Report 10037744 (Version 1)
Quarter: 2014Q1

REPORT INFORMATION
  Report Type: Spontaneous
  Country: US (occurrence: US)
  Receive Date: 20140326
  Receipt Date: 20140326
  Transmission Date: 20141002
  Serious: No
  Sender: FDA-Public Use
  Company Number: US-PFIZER INC-2014082147

PATIENT
  Age: 68 Year
  Sex: Female
  Weight: 96.15 kg

DRUGS (9)
  1. TOVIAZ [Suspect]
     Indication: HYPERTONIC BLADDER
     Dosage: 8 MG, 1X/DAY
     Route: 048
     Dates: start: 2013
  2. SANCTURA XR [Suspect]
     Indication: HYPERTONIC BLADDER
     Dosage: 60 MG, UNK
     Route: 048
  3. ASPIRIN [Concomitant]
     Dosage: 80 MG, UNK
  4. LOVASTATIN [Concomitant]
     Dosage: 20 MG, 1X/DAY
  5. GLIPIZIDE [Concomitant]
     Indication: DIABETES MELLITUS
     Dosage: 10 MG, 2X/DAY
  6. METFORMIN [Concomitant]
     Dosage: 1000 MG, 2X/DAY
  7. METOPROLOL [Concomitant]
     Indication: HYPERTENSION
     Dosage: 50 MG, UNK
  8. LEVOTHYROXINE [Concomitant]
     Indication: THYROID DISORDER
     Dosage: 110 MG, 1X/DAY
  9. ESTRADIOL [Concomitant]
     Dosage: 01 MG, DAILY

REACTIONS (1)
  - Drug ineffective [Unknown]
